FAERS Safety Report 9399843 (Version 1)
Quarter: 2013Q3

REPORT INFORMATION
  Report Type: Spontaneous
  Country: NZ (occurrence: NZ)
  Receive Date: 20130715
  Receipt Date: 20130715
  Transmission Date: 20140515
  Serious: Yes (Other)
  Sender: FDA-Public Use
  Company Number: PHHY2013NZ073643

PATIENT
  Age: 28 Year
  Sex: Female

DRUGS (5)
  1. DICLOFENAC [Suspect]
     Route: 048
  2. PARACETAMOL [Concomitant]
     Route: 048
  3. PREDNISONE [Concomitant]
     Route: 048
  4. TRAMADOL [Concomitant]
     Route: 048
  5. AMOXICILLIN [Concomitant]

REACTIONS (2)
  - Angioedema [Unknown]
  - Chest discomfort [Unknown]
